FAERS Safety Report 12804142 (Version 1)
Quarter: 2016Q4

REPORT INFORMATION
  Report Type: Spontaneous
  Country: US (occurrence: US)
  Receive Date: 20161003
  Receipt Date: 20161003
  Transmission Date: 20170207
  Serious: Yes (Death, Hospitalization)
  Sender: FDA-Public Use
  Company Number: US-SAOL THERAPEUTICS-2016SAO00406

PATIENT
  Sex: Female

DRUGS (1)
  1. BACLOFEN. [Suspect]
     Active Substance: BACLOFEN
     Indication: CEREBRAL PALSY
     Route: 037

REACTIONS (6)
  - Seizure [Fatal]
  - Drug withdrawal syndrome [Fatal]
  - Dehydration [Fatal]
  - Pneumonia [Fatal]
  - Sepsis syndrome [Fatal]
  - Device malfunction [Unknown]
